FAERS Safety Report 4316381-3 (Version None)
Quarter: 2004Q1

REPORT INFORMATION
  Report Type: 
  Country: None (occurrence: None)
  Receive Date: 20040312
  Receipt Date: 20040312
  Transmission Date: 20041129
  Serious: Yes (Other)
  Sender: FDA-Public Use
  Company Number: None

PATIENT
  Age: 43 Year
  Sex: Female
  Weight: 53.02 kg

DRUGS (2)
  1. THALIDOMIDE 200MG QHS [Suspect]
     Indication: MULTIPLE MYELOMA
     Dosage: 200 MG QHS --}PO
     Route: 048
     Dates: start: 20040111, end: 20040121
  2. THALIDOMIDE 200MG QHS [Suspect]
     Indication: MULTIPLE MYELOMA
     Dosage: 200 MG QHS --}PO
     Route: 048
     Dates: start: 20040122, end: 20040217

REACTIONS (6)
  - DYSPNOEA [None]
  - LIVER FUNCTION TEST ABNORMAL [None]
  - MENORRHAGIA [None]
  - PLATELET COUNT DECREASED [None]
  - PULMONARY EMBOLISM [None]
  - PYREXIA [None]
